FAERS Safety Report 6033532-3 (Version None)
Quarter: 2009Q1

REPORT INFORMATION
  Report Type: 
  Country: None (occurrence: None)
  Receive Date: 20090109
  Receipt Date: 20081226
  Transmission Date: 20090719
  Serious: Yes (Other)
  Sender: FDA-Public Use
  Company Number: JP-BRISTOL-MYERS SQUIBB COMPANY-14456388

PATIENT
  Age: 56 Year
  Sex: Female

DRUGS (1)
  1. ABILIFY [Suspect]
     Indication: SCHIZOPHRENIA
     Dosage: DOSE INCREASED TO 18 MG/DAY ON 08-DEC-2008 AND CONTINUED.
     Route: 048
     Dates: start: 20081206

REACTIONS (3)
  - DELUSION [None]
  - DYSGEUSIA [None]
  - OEDEMA [None]
